FAERS Safety Report 13053901 (Version 3)
Quarter: 2017Q1

REPORT INFORMATION
  Report Type: Spontaneous
  Country: US (occurrence: US)
  Receive Date: 20161222
  Receipt Date: 20170214
  Transmission Date: 20170428
  Serious: No
  Sender: FDA-Public Use
  Company Number: US-009507513-1612USA009334

PATIENT
  Age: 16 Year
  Sex: Female
  Weight: 67.12 kg

DRUGS (1)
  1. NEXPLANON [Suspect]
     Active Substance: ETONOGESTREL
     Dosage: IMPLANT
     Route: 059
     Dates: start: 20161123, end: 20161216

REACTIONS (3)
  - Pruritus generalised [Unknown]
  - Urticaria [Recovered/Resolved with Sequelae]
  - Menstruation delayed [Unknown]

NARRATIVE: CASE EVENT DATE: 20161123
